FAERS Safety Report 6326009-9 (Version None)
Quarter: 2009Q3

REPORT INFORMATION
  Report Type: 
  Country: None (occurrence: None)
  Receive Date: 20090820
  Receipt Date: 20090805
  Transmission Date: 20100115
  Serious: Yes (Disabling)
  Sender: FDA-Public Use
  Company Number: 001084

PATIENT
  Sex: Female
  Weight: 63 kg

DRUGS (4)
  1. VIMPAT [Suspect]
     Indication: PARTIAL SEIZURES
     Dosage: (50 MG BID ORAL)
     Dates: start: 20090501
  2. ZONEGRAN [Concomitant]
  3. TRILEPTAL [Concomitant]
  4. URBANYL [Concomitant]

REACTIONS (8)
  - AMAUROSIS [None]
  - DIZZINESS [None]
  - LOSS OF CONSCIOUSNESS [None]
  - MALAISE [None]
  - UNEVALUABLE EVENT [None]
  - VERTIGO [None]
  - VISION BLURRED [None]
  - VISUAL IMPAIRMENT [None]
